FAERS Safety Report 8027523-0 (Version None)
Quarter: 2012Q1

REPORT INFORMATION
  Report Type: 
  Country: None (occurrence: None)
  Receive Date: 20120106
  Receipt Date: 20120105
  Transmission Date: 20120608
  Serious: Yes (Other)
  Sender: FDA-Public Use
  Company Number: JP-JNJFOC-20111206456

PATIENT

DRUGS (1)
  1. TRAMADOL HYDROCHLORIDE/ACETAMINOPHEN [Suspect]
     Indication: PRODUCT USED FOR UNKNOWN INDICATION
     Dosage: 4 DF, 1 PER 1 DAY
     Route: 048

REACTIONS (4)
  - VOMITING [None]
  - NAUSEA [None]
  - CONFUSIONAL STATE [None]
  - NEOPLASM MALIGNANT [None]
